FAERS Safety Report 8548928-5 (Version None)
Quarter: 2012Q3

REPORT INFORMATION
  Report Type: 
  Country: None (occurrence: None)
  Receive Date: 20120730
  Receipt Date: 20120726
  Transmission Date: 20120928
  Serious: Yes (Life-Threatening, Other)
  Sender: FDA-Public Use
  Company Number: PHHY2012BR043532

PATIENT
  Age: 65 Year
  Sex: Female

DRUGS (5)
  1. FORMOTEROL FUMARATE [Suspect]
     Indication: CHRONIC OBSTRUCTIVE PULMONARY DISEASE
     Dosage: DF (2 CAPSULES OF EACH TREATMENT DAILY)
  2. BAMIFIX [Suspect]
     Dosage: UNK UKN, UNK
  3. SPIRIVA [Suspect]
     Dosage: UNK UKN, UNK
  4. TAMIRAM [Concomitant]
     Dosage: 1 DF, QD
     Route: 048
     Dates: start: 20120721, end: 20120722
  5. FORMOTEROL FUMARATE [Suspect]
     Dosage: 1 DF, UNK

REACTIONS (12)
  - DRUG DEPENDENCE [None]
  - DYSPNOEA [None]
  - INSOMNIA [None]
  - THROAT IRRITATION [None]
  - ANXIETY [None]
  - STOMATITIS [None]
  - GAIT DISTURBANCE [None]
  - DIAPHRAGMATIC DISORDER [None]
  - INCORRECT DOSE ADMINISTERED [None]
  - INFLUENZA [None]
  - NASOPHARYNGITIS [None]
  - TACHYCARDIA [None]
